FAERS Safety Report 15929804 (Version 1)
Quarter: 2019Q1

REPORT INFORMATION
  Report Type: Spontaneous
  Country: US (occurrence: US)
  Receive Date: 20190206
  Receipt Date: 20190206
  Transmission Date: 20190417
  Serious: Yes (Other)
  Sender: FDA-Public Use
  Company Number: US-MYLANLABS-2019M1008373

PATIENT
  Age: 52 Year
  Sex: Female

DRUGS (2)
  1. MACROGOL 3350 [Suspect]
     Active Substance: POLYETHYLENE GLYCOL 3350
     Indication: COLONOSCOPY
     Route: 065
  2. PHYTONADIONE. [Suspect]
     Active Substance: PHYTONADIONE
     Indication: INTERNATIONAL NORMALISED RATIO INCREASED
     Route: 042

REACTIONS (2)
  - Therapeutic product cross-reactivity [Unknown]
  - Hypersensitivity [Recovered/Resolved]
